FAERS Safety Report 16666929 (Version 1)
Quarter: 2019Q3

REPORT INFORMATION
  Report Type: Spontaneous
  Country: US (occurrence: US)
  Receive Date: 20190805
  Receipt Date: 20190805
  Transmission Date: 20191004
  Serious: Yes (Other)
  Sender: FDA-Public Use
  Company Number: US-ALKEM LABORATORIES LIMITED-US-ALKEM-2018-07769

PATIENT
  Age: 17 Year
  Sex: Female

DRUGS (2)
  1. LAMOTRIGINE. [Suspect]
     Active Substance: LAMOTRIGINE
     Dosage: UNK, RE-CHALLENGE WAS INITIATED AT 5MG DAILY INCREASED BY 5MG EVERY TWO WEEKS UNTIL A DOSE OF 25MG/D
     Route: 065
  2. LAMOTRIGINE. [Suspect]
     Active Substance: LAMOTRIGINE
     Indication: BIPOLAR I DISORDER
     Dosage: UNK, WITHDRAWN AFTER FIRST RASH
     Route: 065

REACTIONS (4)
  - Neuralgia [Unknown]
  - Erythema [Unknown]
  - Rash pruritic [Recovered/Resolved]
  - Dyspnoea [Unknown]
